FAERS Safety Report 5042350-4 (Version None)
Quarter: 2006Q3

REPORT INFORMATION
  Report Type: 
  Country: None (occurrence: None)
  Receive Date: 20060705
  Receipt Date: 20060622
  Transmission Date: 20061208
  Serious: Yes (Hospitalization)
  Sender: FDA-Public Use
  Company Number: JP-JNJFOC-20060301365

PATIENT
  Sex: Male

DRUGS (5)
  1. ITRIZOLE [Suspect]
     Indication: NAIL TINEA
     Route: 048
     Dates: start: 20060220, end: 20060226
  2. LOXOPROFEN SODIUM [Concomitant]
     Indication: JOINT DISLOCATION
     Route: 048
  3. ASPIRIN [Concomitant]
     Indication: EMBOLISM
     Route: 048
  4. BENEXATE HYDROCHLORIDE [Concomitant]
     Indication: JOINT DISLOCATION
     Route: 048
  5. FAMOTIDINE [Concomitant]
     Indication: GASTRIC ULCER
     Route: 048

REACTIONS (4)
  - DRUG ERUPTION [None]
  - INFECTION [None]
  - LEUKOCYTOSIS [None]
  - PYREXIA [None]
